FAERS Safety Report 6233437-9 (Version None)
Quarter: 2009Q2

REPORT INFORMATION
  Report Type: 
  Country: None (occurrence: None)
  Receive Date: 20090616
  Receipt Date: 20090616
  Transmission Date: 20091009
  Serious: Yes (Hospitalization)
  Sender: FDA-Public Use
  Company Number: None

PATIENT
  Sex: Female
  Weight: 88.905 kg

DRUGS (2)
  1. PEGASYS [Suspect]
     Indication: HEPATITIS C
     Dosage: 180 MCG/ 0.5ML WEEKLY SQ
     Route: 058
     Dates: start: 20090518, end: 20090618
  2. RIBAVIRIN [Suspect]
     Indication: HEPATITIS C
     Dosage: 200 MG 3 CAP BID PO
     Route: 048
     Dates: start: 20090518, end: 20090618

REACTIONS (2)
  - ADRENAL MASS [None]
  - APPENDICITIS [None]
